FAERS Safety Report 7600119-8 (Version None)
Quarter: 2011Q3

REPORT INFORMATION
  Report Type: 
  Country: None (occurrence: None)
  Receive Date: 20110711
  Receipt Date: 20110628
  Transmission Date: 20111222
  Serious: Yes (Hospitalization)
  Sender: FDA-Public Use
  Company Number: US-ELI_LILLY_AND_COMPANY-US200909000565

PATIENT
  Sex: Male

DRUGS (17)
  1. STOOL SOFTENER [Concomitant]
     Dosage: 100 MG, OTHER
     Route: 065
  2. CLARITIN [Concomitant]
     Dosage: 10 MG, DAILY (1/D)
     Route: 065
  3. METAMUCIL-2 [Concomitant]
     Dosage: UNK UNK, BID
     Route: 065
  4. FORTEO [Suspect]
     Dosage: 20 UG, QD
  5. ASPIRIN [Concomitant]
     Dosage: 81 MG, DAILY (1/D)
     Route: 065
  6. LIPITOR [Concomitant]
     Dosage: 10 MG, DAILY (1/D)
     Route: 065
  7. LISINOPRIL [Concomitant]
     Dosage: 2.5 MG, DAILY (1/D)
     Route: 065
  8. HYDROQUINONE [Concomitant]
     Dosage: 1 DF, PRN
  9. FORTEO [Suspect]
     Indication: OSTEOPOROSIS
     Dosage: 20 UG, DAILY (1/D)
     Route: 065
     Dates: start: 20090801
  10. FORTEO [Suspect]
     Dosage: 20 UG, DAILY (1/D)
     Route: 065
     Dates: start: 20090830
  11. CALCIUM /N/A/ [Concomitant]
     Dosage: 1000 IU, DAILY (1/D)
  12. VITAMIN TAB [Concomitant]
     Dosage: UNK UNK, QD
     Route: 065
  13. VITAMIN D [Concomitant]
     Dosage: 2000 IU, DAILY (1/D)
     Route: 065
  14. PLAVIX [Concomitant]
     Dosage: 75 MG, DAILY (1/D)
  15. ISOSORBIDE MONONITRATE [Concomitant]
     Dosage: 30 MG, DAILY (1/D)
     Route: 065
  16. COUMADIN [Concomitant]
     Dosage: UNK UNK, QD
     Route: 065
  17. METOPROLOL TARTRATE [Concomitant]
     Dosage: 12.5 MG, DAILY (1/D)
     Route: 065

REACTIONS (9)
  - CORONARY ARTERY OCCLUSION [None]
  - CHEST DISCOMFORT [None]
  - DYSPNOEA [None]
  - STENT PLACEMENT [None]
  - HOSPITALISATION [None]
  - FATIGUE [None]
  - GAIT DISTURBANCE [None]
  - CHEST PAIN [None]
  - CONSTIPATION [None]
